FAERS Safety Report 11120837 (Version 3)
Quarter: 2015Q4

REPORT INFORMATION
  Report Type: Spontaneous
  Country: IT (occurrence: IT)
  Receive Date: 20150519
  Receipt Date: 20151129
  Transmission Date: 20160304
  Serious: Yes (Hospitalization)
  Sender: FDA-Public Use
  Company Number: IT-ROCHE-1579371

PATIENT
  Age: 67 Year
  Sex: Male
  Weight: 76 kg

DRUGS (4)
  1. ABT-267 [Suspect]
     Active Substance: OMBITASVIR
     Indication: CHRONIC HEPATITIS C
     Dosage: DRUG FOR COMPASSIONATE USE
     Route: 048
     Dates: start: 20150319, end: 20150506
  2. COPEGUS [Suspect]
     Active Substance: RIBAVIRIN
     Indication: CHRONIC HEPATITIS C
     Dosage: 200 MG FILM-COATED TABLETS 168 TABLETS IN A BOTTLE
     Route: 048
     Dates: start: 20150319, end: 20150506
  3. ABT-333 [Suspect]
     Active Substance: DASABUVIR
     Indication: HEPATITIS C
     Dosage: DRUG FOR COMPASSIONATE USE
     Route: 048
     Dates: start: 20150319, end: 20150506
  4. ABT-450 [Suspect]
     Active Substance: PARITAPREVIR
     Indication: CHRONIC HEPATITIS C
     Dosage: DRUG FOR COMPASSIONATE USE
     Route: 048
     Dates: start: 20150319, end: 20150506

REACTIONS (2)
  - Diplopia [Unknown]
  - Eyelid ptosis [Unknown]

NARRATIVE: CASE EVENT DATE: 20150502
